FAERS Safety Report 4638679-1 (Version None)
Quarter: 2005Q2

REPORT INFORMATION
  Report Type: 
  Country: None (occurrence: None)
  Receive Date: 20050418
  Receipt Date: 20050418
  Transmission Date: 20051028
  Serious: No
  Sender: FDA-Public Use
  Company Number: None

PATIENT
  Age: 35 Year
  Sex: Female

DRUGS (1)
  1. DEXFERRUM [Suspect]
     Indication: ANAEMIA
     Dosage: 25 MG IV
     Route: 042
     Dates: start: 20041214

REACTIONS (3)
  - DYSPNOEA [None]
  - NAUSEA [None]
  - VOMITING [None]
